FAERS Safety Report 15452630 (Version 2)
Quarter: 2018Q4

REPORT INFORMATION
  Report Type: Report from Study
  Country: MY (occurrence: MY)
  Receive Date: 20181001
  Receipt Date: 20181016
  Transmission Date: 20190204
  Serious: Yes (Death)
  Sender: FDA-Public Use
  Company Number: PHHY2018MY106765

PATIENT
  Sex: Male

DRUGS (1)
  1. VOTRIENT [Suspect]
     Active Substance: PAZOPANIB HYDROCHLORIDE
     Indication: RENAL CELL CARCINOMA
     Dosage: 400 MG, QD ALTERNATE WITH 200 MG, QD
     Route: 048
     Dates: start: 20180128

REACTIONS (1)
  - Renal cell carcinoma [Fatal]
